FAERS Safety Report 18433951 (Version 1)
Quarter: 2020Q4

REPORT INFORMATION
  Report Type: Spontaneous
  Country: GB (occurrence: GB)
  Receive Date: 20201028
  Receipt Date: 20201028
  Transmission Date: 20210114
  Serious: Yes (Other)
  Sender: FDA-Public Use
  Company Number: GB-EDENBRIDGE PHARMACEUTICALS, LLC-GB-2020EDE000047

PATIENT
  Sex: Female

DRUGS (3)
  1. PREDNISOLONE SODIUM PHOSPHATE. [Suspect]
     Active Substance: PREDNISOLONE SODIUM PHOSPHATE
     Indication: HABITUAL ABORTION
     Dosage: 20 MG, UNK
  2. CYCLOGEST [Concomitant]
     Active Substance: PROGESTERONE
     Indication: PRODUCT USED FOR UNKNOWN INDICATION
  3. FOLIC ACID. [Concomitant]
     Active Substance: FOLIC ACID
     Indication: PRODUCT USED FOR UNKNOWN INDICATION
     Dosage: HIGH DOSE

REACTIONS (3)
  - Foetal growth restriction [Unknown]
  - Exposure during pregnancy [Unknown]
  - Off label use [Unknown]
